FAERS Safety Report 24311555 (Version 6)
Quarter: 2024Q4

REPORT INFORMATION
  Report Type: Spontaneous
  Country: CA (occurrence: CA)
  Receive Date: 20240912
  Receipt Date: 20241220
  Transmission Date: 20250115
  Serious: Yes (Other)
  Sender: PFIZER
  Company Number: CA-PFIZER INC-202400247776

PATIENT
  Age: 29 Year
  Sex: Female

DRUGS (4)
  1. ABRILADA [Suspect]
     Active Substance: ADALIMUMAB-AFZB
     Indication: Hidradenitis
     Dosage: 160 MG AT WEEK 0, 80 MG AT WEEK 2 AND 40MG EVERY WEEK STARTING WEEK 4
     Route: 058
     Dates: start: 20240229
  2. ABRILADA [Suspect]
     Active Substance: ADALIMUMAB-AFZB
     Dosage: SPACING OUT INJECTIONS
     Dates: start: 202407
  3. ABRILADA [Suspect]
     Active Substance: ADALIMUMAB-AFZB
     Dosage: 40 MG, WEEKLY
     Route: 058
     Dates: start: 20240824, end: 2024
  4. BENZOYL PEROXIDE\CLINDAMYCIN [Concomitant]
     Active Substance: BENZOYL PEROXIDE\CLINDAMYCIN
     Dosage: 1 DF, UNKNOWN
     Dates: start: 2022

REACTIONS (4)
  - Oral surgery [Unknown]
  - Increased tendency to bruise [Unknown]
  - Vitamin D decreased [Unknown]
  - Intentional product misuse [Unknown]

NARRATIVE: CASE EVENT DATE: 20240101
